FAERS Safety Report 25001411 (Version 1)
Quarter: 2025Q1

REPORT INFORMATION
  Report Type: Spontaneous
  Country: US (occurrence: US)
  Receive Date: 20250223
  Receipt Date: 20250223
  Transmission Date: 20250409
  Serious: Yes (Hospitalization, Other)
  Sender: JOHNSON AND JOHNSON
  Company Number: US-JNJFOC-20250250336

PATIENT
  Age: 76 Year
  Sex: Female
  Weight: 70.7 kg

DRUGS (25)
  1. UPTRAVI [Suspect]
     Active Substance: SELEXIPAG
     Indication: Product used for unknown indication
     Route: 048
     Dates: start: 202306, end: 2023
  2. UPTRAVI [Suspect]
     Active Substance: SELEXIPAG
     Route: 048
     Dates: start: 202411
  3. UPTRAVI [Suspect]
     Active Substance: SELEXIPAG
     Route: 048
     Dates: start: 20250203, end: 202502
  4. TYVASO DPI [Suspect]
     Active Substance: TREPROSTINIL
     Indication: Pulmonary arterial hypertension
     Route: 055
     Dates: start: 20250202
  5. TYVASO DPI [Suspect]
     Active Substance: TREPROSTINIL
     Route: 055
     Dates: start: 20231113
  6. CARDURA [Suspect]
     Active Substance: DOXAZOSIN MESYLATE
     Indication: Urinary tract infection
     Route: 065
  7. OPSUMIT [Concomitant]
     Active Substance: MACITENTAN
  8. VANTIN [Concomitant]
     Active Substance: CEFPODOXIME PROXETIL
  9. DEMADEX [Concomitant]
     Active Substance: TORSEMIDE
     Dates: start: 20241204
  10. PLAVIX [Concomitant]
     Active Substance: CLOPIDOGREL BISULFATE
     Dates: start: 20241204
  11. NORVASC [Concomitant]
     Active Substance: AMLODIPINE BESYLATE
     Dates: start: 20241204
  12. CLARITHROMYCIN [Concomitant]
     Active Substance: CLARITHROMYCIN
  13. LUBRIFRESH P.M. [Concomitant]
     Active Substance: MINERAL OIL\PETROLATUM
  14. BACTROBAN [Concomitant]
     Active Substance: MUPIROCIN CALCIUM
     Dates: start: 20241115
  15. COLACE [Concomitant]
     Active Substance: DOCUSATE SODIUM
  16. CROMOLYN SODIUM [Concomitant]
     Active Substance: CROMOLYN SODIUM
  17. MICARDIS [Concomitant]
     Active Substance: TELMISARTAN
  18. DEXAMETHASONE [Concomitant]
     Active Substance: DEXAMETHASONE
     Dates: start: 20230823
  19. PROVENTIL [Concomitant]
     Active Substance: ALBUTEROL
     Dates: start: 20230912
  20. ALBUTEROL SULFATE [Concomitant]
     Active Substance: ALBUTEROL SULFATE
     Dates: start: 20230912
  21. FLUTICASONE PROPIONATE [Concomitant]
     Active Substance: FLUTICASONE PROPIONATE
  22. ASPIRIN [Concomitant]
     Active Substance: ASPIRIN
  23. PREVACID [Concomitant]
     Active Substance: LANSOPRAZOLE
  24. IMURAN [Concomitant]
     Active Substance: AZATHIOPRINE
  25. KEFLEX [Concomitant]
     Active Substance: CEPHALEXIN

REACTIONS (9)
  - Urinary tract infection [Not Recovered/Not Resolved]
  - Blood pressure increased [Unknown]
  - Headache [Not Recovered/Not Resolved]
  - Peripheral swelling [Not Recovered/Not Resolved]
  - Blood sodium decreased [Unknown]
  - Blood lactic acid increased [Unknown]
  - Blood pressure decreased [Unknown]
  - Fluid retention [Unknown]
  - Infection [Unknown]

NARRATIVE: CASE EVENT DATE: 20241101
